FAERS Safety Report 9904801 (Version 2)
Quarter: 2014Q3

REPORT INFORMATION
  Report Type: Spontaneous
  Country: US (occurrence: US)
  Receive Date: 20140218
  Receipt Date: 20140820
  Transmission Date: 20150326
  Serious: Yes (Hospitalization, Other)
  Sender: FDA-Public Use
  Company Number: US-009507513-1402USA007264

PATIENT
  Sex: Female
  Weight: 84.81 kg

DRUGS (1)
  1. NUVARING [Suspect]
     Active Substance: ETHINYL ESTRADIOL\ETONOGESTREL
     Indication: CONTRACEPTION
     Dosage: 0.12MG-0.015MG/24 HR X3 WKS, REMOVE 1 WK, REPEAT
     Route: 067
     Dates: start: 20120106, end: 20120724

REACTIONS (5)
  - Cerebellar haemorrhage [Recovered/Resolved]
  - Cerebral artery occlusion [Recovered/Resolved]
  - Syncope [Recovered/Resolved]
  - Transverse sinus thrombosis [Recovered/Resolved]
  - Thrombectomy [Recovered/Resolved]

NARRATIVE: CASE EVENT DATE: 20120722
